FAERS Safety Report 15651231 (Version 2)
Quarter: 2019Q4

REPORT INFORMATION
  Report Type: Report from Study
  Country: US (occurrence: US)
  Receive Date: 20181123
  Receipt Date: 20191030
  Transmission Date: 20200122
  Serious: Yes (Other)
  Sender: FDA-Public Use
  Company Number: PHHY2017US139441

PATIENT
  Age: 36 Year
  Sex: Female

DRUGS (1)
  1. GILENYA [Suspect]
     Active Substance: FINGOLIMOD HYDROCHLORIDE
     Indication: MULTIPLE SCLEROSIS
     Dosage: UNK, QD
     Route: 048

REACTIONS (9)
  - Lymphocyte count decreased [Unknown]
  - Fatigue [Unknown]
  - Weight increased [Unknown]
  - Lentigo [Unknown]
  - Melanocytic naevus [Unknown]
  - Cafe au lait spots [Unknown]
  - Aplasia cutis congenita [Unknown]
  - Haemangioma [Unknown]
  - Seborrhoeic keratosis [Unknown]

NARRATIVE: CASE EVENT DATE: 20170727
